FAERS Safety Report 6068202-9 (Version None)
Quarter: 2009Q1

REPORT INFORMATION
  Report Type: 
  Country: None (occurrence: None)
  Receive Date: 20090206
  Receipt Date: 20090126
  Transmission Date: 20090719
  Serious: Yes (Hospitalization)
  Sender: FDA-Public Use
  Company Number: GB-NOVOPROD-282693

PATIENT
  Sex: Male

DRUGS (2)
  1. NOVORAPID [Suspect]
     Indication: TYPE 1 DIABETES MELLITUS
     Route: 058
  2. HUMALOG [Suspect]
     Indication: DRUG USE FOR UNKNOWN INDICATION
     Dosage: 42 IU, QD (26+16)
     Route: 058

REACTIONS (7)
  - BLOOD GLUCOSE FLUCTUATION [None]
  - BLOOD KETONE BODY [None]
  - DIABETIC KETOACIDOSIS [None]
  - GASTROENTERITIS VIRAL [None]
  - INFLUENZA [None]
  - LOWER RESPIRATORY TRACT INFECTION [None]
  - VIRAL INFECTION [None]
